FAERS Safety Report 19947507 (Version 1)
Quarter: 2021Q4

REPORT INFORMATION
  Report Type: Spontaneous
  Country: US (occurrence: US)
  Receive Date: 20211013
  Receipt Date: 20211013
  Transmission Date: 20220303
  Serious: No
  Sender: FDA-Public Use
  Company Number: US-BEH-2021136919

PATIENT
  Sex: Male
  Weight: 56.69 kg

DRUGS (1)
  1. PRIVIGEN [Suspect]
     Active Substance: HUMAN IMMUNOGLOBULIN G
     Indication: Immunodeficiency
     Dosage: 15 GRAM, QMT
     Route: 042
     Dates: start: 202002

REACTIONS (1)
  - Weight increased [Unknown]
